FAERS Safety Report 9808456 (Version 1)
Quarter: 2014Q1

REPORT INFORMATION
  Report Type: Spontaneous
  Country: US (occurrence: US)
  Receive Date: 20140110
  Receipt Date: 20140110
  Transmission Date: 20141002
  Serious: No
  Sender: FDA-Public Use
  Company Number: US-009507513-1401USA003209

PATIENT
  Age: 60 Year
  Sex: Female

DRUGS (1)
  1. LIPTRUZET [Suspect]
     Indication: BLOOD CHOLESTEROL INCREASED
     Dosage: 10/80 MG QD
     Route: 048
     Dates: start: 201309, end: 2013

REACTIONS (2)
  - Hyperhidrosis [Recovering/Resolving]
  - Myalgia [Recovering/Resolving]
